FAERS Safety Report 19799153 (Version 2)
Quarter: 2021Q3

REPORT INFORMATION
  Report Type: Spontaneous
  Country: US (occurrence: US)
  Receive Date: 20210907
  Receipt Date: 20210917
  Transmission Date: 20211014
  Serious: Yes (Hospitalization, Other)
  Sender: FDA-Public Use
  Company Number: US-HIKMA PHARMACEUTICALS USA INC.-US-H14001-21-03906

PATIENT
  Age: 35 Year
  Sex: Male

DRUGS (6)
  1. ZOLPIDEM [Concomitant]
     Active Substance: ZOLPIDEM TARTRATE
     Indication: SLEEP DISORDER
     Route: 065
  2. KETAMINE [Concomitant]
     Active Substance: KETAMINE
     Indication: PRODUCT USED FOR UNKNOWN INDICATION
     Route: 048
  3. KETAMINE [Suspect]
     Active Substance: KETAMINE
     Indication: PRODUCT USED FOR UNKNOWN INDICATION
     Dosage: UNKNOWN
     Route: 042
  4. BUPROPION. [Concomitant]
     Active Substance: BUPROPION
     Indication: PRODUCT USED FOR UNKNOWN INDICATION
     Route: 065
  5. LORAZEPAM. [Concomitant]
     Active Substance: LORAZEPAM
     Indication: ANXIETY
     Route: 065
  6. CANNABIS [Concomitant]
     Active Substance: CANNABIS SATIVA SUBSP. INDICA TOP
     Indication: PRODUCT USED FOR UNKNOWN INDICATION
     Dosage: UNKNOWN
     Route: 065

REACTIONS (23)
  - Affect lability [Unknown]
  - Posture abnormal [Unknown]
  - Irritability [Unknown]
  - Agitation [Unknown]
  - Thinking abnormal [Unknown]
  - Mental status changes [Unknown]
  - Drug abuse [Unknown]
  - Depression [Unknown]
  - Pressure of speech [Unknown]
  - Off label use [Unknown]
  - Suicidal ideation [Unknown]
  - Condition aggravated [Unknown]
  - Insomnia [Unknown]
  - Violence-related symptom [Unknown]
  - Dysphoria [Unknown]
  - Dependence [Unknown]
  - Overdose [Unknown]
  - Disturbance in attention [Unknown]
  - Aggression [Unknown]
  - Drug withdrawal syndrome [Unknown]
  - Anxiety [Unknown]
  - Tachyphrenia [Unknown]
  - Drug dependence [Unknown]
